FAERS Safety Report 8426146-9 (Version None)
Quarter: 2012Q2

REPORT INFORMATION
  Report Type: 
  Country: None (occurrence: None)
  Receive Date: 20120323
  Receipt Date: 20110422
  Transmission Date: 20120825
  Serious: Yes (Other)
  Sender: FDA-Public Use
  Company Number: 163-21880-11043060

PATIENT
  Age: 60 Year
  Sex: Female
  Weight: 49.44 kg

DRUGS (2)
  1. REVLIMID [Suspect]
     Indication: MULTIPLE MYELOMA
     Dosage: 25 MG, 1 IN 1 D, PO,  10 MG, 1 IN 1 D, PO
     Route: 048
     Dates: start: 20100901
  2. REVLIMID [Suspect]
     Indication: MULTIPLE MYELOMA
     Dosage: 25 MG, 1 IN 1 D, PO,  10 MG, 1 IN 1 D, PO
     Route: 048
     Dates: start: 20110301

REACTIONS (1)
  - ULCER [None]
